FAERS Safety Report 9586584 (Version 1)
Quarter: 2013Q4

REPORT INFORMATION
  Report Type: Spontaneous
  Country: US (occurrence: None)
  Receive Date: 20131001
  Receipt Date: 20131001
  Transmission Date: 20140711
  Serious: Yes (Hospitalization)
  Sender: FDA-Public Use
  Company Number: UCM201309-000068

PATIENT
  Age: 12 Month
  Sex: Female
  Weight: 8.9 kg

DRUGS (1)
  1. LAMOTRIGINE [Suspect]

REACTIONS (6)
  - Toxicity to various agents [None]
  - Serotonin syndrome [None]
  - Accidental exposure to product by child [None]
  - Hyperhidrosis [None]
  - Hypotonia [None]
  - Nausea [None]
